FAERS Safety Report 8135822-7 (Version None)
Quarter: 2012Q1

REPORT INFORMATION
  Report Type: 
  Country: None (occurrence: None)
  Receive Date: 20120214
  Receipt Date: 20120213
  Transmission Date: 20120608
  Serious: Yes (Hospitalization)
  Sender: FDA-Public Use
  Company Number: US-GLAXOSMITHKLINE-A0928838A

PATIENT
  Sex: Female

DRUGS (1)
  1. AVANDIA [Suspect]
     Indication: DIABETES MELLITUS
     Route: 048
     Dates: start: 20060101, end: 20100101

REACTIONS (4)
  - AMNESIA [None]
  - CARDIAC DISORDER [None]
  - MUSCULOSKELETAL DISORDER [None]
  - MYOCARDIAL INFARCTION [None]
